FAERS Safety Report 15762106 (Version 2)
Quarter: 2019Q2

REPORT INFORMATION
  Report Type: Spontaneous
  Country: US (occurrence: US)
  Receive Date: 20181226
  Receipt Date: 20190529
  Transmission Date: 20190711
  Serious: Yes (Hospitalization)
  Sender: FDA-Public Use
  Company Number: US-PFIZER INC-2018528763

PATIENT
  Age: 77 Year
  Sex: Female

DRUGS (4)
  1. XELJANZ XR [Suspect]
     Active Substance: TOFACITINIB CITRATE
     Indication: RHEUMATOID ARTHRITIS
     Dosage: 11 MG, DAILY
     Route: 048
     Dates: start: 20181016
  2. XELJANZ XR [Suspect]
     Active Substance: TOFACITINIB CITRATE
     Indication: ARTHRALGIA
     Dosage: UNK
     Dates: start: 201902
  3. XELJANZ XR [Suspect]
     Active Substance: TOFACITINIB CITRATE
     Indication: ARTHRALGIA
     Dosage: UNK
  4. XELJANZ XR [Suspect]
     Active Substance: TOFACITINIB CITRATE
     Indication: PAIN IN EXTREMITY
     Dosage: 11 MG, 1X/DAY
     Dates: start: 201812, end: 20190131

REACTIONS (12)
  - Diarrhoea [Not Recovered/Not Resolved]
  - Throat irritation [Recovered/Resolved]
  - Malaise [Unknown]
  - Product dose omission [Recovered/Resolved]
  - Aphonia [Recovered/Resolved]
  - Weight decreased [Unknown]
  - Dysphonia [Not Recovered/Not Resolved]
  - Vomiting [Not Recovered/Not Resolved]
  - Nausea [Not Recovered/Not Resolved]
  - Chills [Recovered/Resolved]
  - Serum ferritin increased [Unknown]
  - Red blood cell sedimentation rate increased [Unknown]

NARRATIVE: CASE EVENT DATE: 201812
